FAERS Safety Report 6907254-8 (Version None)
Quarter: 2010Q3

REPORT INFORMATION
  Report Type: 
  Country: None (occurrence: None)
  Receive Date: 20100802
  Receipt Date: 20100727
  Transmission Date: 20110219
  Serious: Yes (Other)
  Sender: FDA-Public Use
  Company Number: 668637

PATIENT
  Age: 83 Year
  Sex: Male

DRUGS (1)
  1. SOLARAZE [Suspect]

REACTIONS (1)
  - HAEMATEMESIS [None]
